FAERS Safety Report 5701977-4 (Version None)
Quarter: 2008Q2

REPORT INFORMATION
  Report Type: 
  Country: None (occurrence: None)
  Receive Date: 20080411
  Receipt Date: 20070410
  Transmission Date: 20081010
  Serious: No
  Sender: FDA-Public Use
  Company Number: US-ABBOTT-07P-163-0365030-00

PATIENT
  Sex: Male
  Weight: 109 kg

DRUGS (4)
  1. DEPAKOTE [Suspect]
     Indication: ANXIETY
     Route: 048
     Dates: start: 20070301
  2. DEPAKOTE [Suspect]
     Route: 048
     Dates: start: 20070301, end: 20070301
  3. QUETIAPINE FUMARATE [Suspect]
     Indication: ANXIETY
     Route: 048
     Dates: start: 20070301
  4. QUETIAPINE FUMARATE [Suspect]
     Indication: INSOMNIA

REACTIONS (5)
  - DYSPHAGIA [None]
  - GLOSSODYNIA [None]
  - NIGHT SWEATS [None]
  - PHARYNGEAL OEDEMA [None]
  - SWOLLEN TONGUE [None]
